FAERS Safety Report 4777512-4 (Version None)
Quarter: 2005Q3

REPORT INFORMATION
  Report Type: 
  Country: None (occurrence: None)
  Receive Date: 20050923
  Receipt Date: 20050908
  Transmission Date: 20060218
  Serious: Yes (Other)
  Sender: FDA-Public Use
  Company Number: HQWYE333609SEP05

PATIENT
  Sex: Female

DRUGS (7)
  1. ENBREL [Suspect]
     Indication: RHEUMATOID ARTHRITIS
     Route: 058
     Dates: start: 20050614, end: 20050824
  2. RHEUMATREX [Concomitant]
     Route: 048
  3. AZULFIDINE [Concomitant]
     Route: 048
     Dates: start: 19950101
  4. LOXONIN [Concomitant]
  5. HALCION [Concomitant]
  6. GASTER [Concomitant]
  7. PREDONINE [Concomitant]

REACTIONS (5)
  - ALANINE AMINOTRANSFERASE INCREASED [None]
  - ASPARTATE AMINOTRANSFERASE INCREASED [None]
  - GAMMA-GLUTAMYLTRANSFERASE INCREASED [None]
  - HEPATIC FUNCTION ABNORMAL [None]
  - PARAESTHESIA [None]
